FAERS Safety Report 20543580 (Version 1)
Quarter: 2022Q1

REPORT INFORMATION
  Report Type: Spontaneous
  Country: FR (occurrence: FR)
  Receive Date: 20220302
  Receipt Date: 20220302
  Transmission Date: 20220424
  Serious: Yes (Other)
  Sender: FDA-Public Use
  Company Number: FR-SUN PHARMACEUTICAL INDUSTRIES LTD-2022R1-327622

PATIENT
  Age: 22 Year
  Sex: Male

DRUGS (2)
  1. ACETAZOLAMIDE [Suspect]
     Active Substance: ACETAZOLAMIDE
     Indication: Retinal degeneration
     Dosage: 250 MILLIGRAM, TID
     Route: 048
  2. DORZOLAMIDE [Suspect]
     Active Substance: DORZOLAMIDE
     Indication: Retinal degeneration
     Dosage: 1 DROP, TID
     Route: 061

REACTIONS (1)
  - Drug ineffective [Unknown]
